FAERS Safety Report 5029546-2 (Version None)
Quarter: 2006Q2

REPORT INFORMATION
  Report Type: 
  Country: None (occurrence: None)
  Receive Date: 20060620
  Receipt Date: 20060614
  Transmission Date: 20061013
  Serious: Yes (Other)
  Sender: FDA-Public Use
  Company Number: PHEH2006US07811

PATIENT
  Sex: Male

DRUGS (1)
  1. TEGRETOL [Suspect]
     Indication: LOSS OF CONSCIOUSNESS
     Dates: start: 19900101, end: 19910601

REACTIONS (8)
  - AMNESIA [None]
  - ASTHENIA [None]
  - DEPRESSION [None]
  - DIZZINESS [None]
  - LETHARGY [None]
  - MUSCLE SPASMS [None]
  - PETIT MAL EPILEPSY [None]
  - VOMITING [None]
